FAERS Safety Report 18656496 (Version 1)
Quarter: 2020Q4

REPORT INFORMATION
  Report Type: Spontaneous
  Country: US (occurrence: US)
  Receive Date: 20201223
  Receipt Date: 20201223
  Transmission Date: 20210114
  Serious: No
  Sender: FDA-Public Use
  Company Number: US-BEIGENE USA INC-BGN-2020-002800

PATIENT

DRUGS (4)
  1. DOFETILIDE. [Concomitant]
     Active Substance: DOFETILIDE
     Indication: CARDIAC DISORDER
     Dosage: 250 MICROGRAM, QD
  2. METOPROLOL. [Concomitant]
     Active Substance: METOPROLOL
     Indication: ATRIAL FIBRILLATION
     Dosage: 25 MILLIGRAM, QD AT BEDTIME
  3. BRUKINSA [Suspect]
     Active Substance: ZANUBRUTINIB
     Indication: WALDENSTROM^S MACROGLOBULINAEMIA
     Dosage: 160 MILLIGRAM, BID
     Route: 048
     Dates: start: 20201013
  4. ELIQUIS [Concomitant]
     Active Substance: APIXABAN
     Indication: ATRIAL FIBRILLATION
     Dosage: 5 MILLIGRAM, QD

REACTIONS (2)
  - Off label use [Unknown]
  - Petechiae [Unknown]
